FAERS Safety Report 20775757 (Version 2)
Quarter: 2022Q2

REPORT INFORMATION
  Report Type: Spontaneous
  Country: GB (occurrence: GB)
  Receive Date: 20220502
  Receipt Date: 20220512
  Transmission Date: 20220720
  Serious: Yes (Other)
  Sender: FDA-Public Use
  Company Number: GB-BAYER-2022A058577

PATIENT
  Sex: Female

DRUGS (1)
  1. MIRENA [Suspect]
     Active Substance: LEVONORGESTREL
     Indication: Heavy menstrual bleeding
     Dosage: 20?G/DAY
     Route: 015
     Dates: start: 201706, end: 20220403

REACTIONS (7)
  - Embedded device [Recovering/Resolving]
  - Uterine cancer [None]
  - Complication of device removal [None]
  - Complication of device removal [None]
  - Uterine enlargement [None]
  - Pelvic pain [None]
  - Arthralgia [None]

NARRATIVE: CASE EVENT DATE: 20211223
